FAERS Safety Report 4839536-8 (Version None)
Quarter: 2005Q4

REPORT INFORMATION
  Report Type: 
  Country: None (occurrence: None)
  Receive Date: 20051129
  Receipt Date: 20050916
  Transmission Date: 20060501
  Serious: Yes (Hospitalization, Other)
  Sender: FDA-Public Use
  Company Number: US-MERCK-0509USA02746

PATIENT
  Age: 64 Year
  Sex: Male
  Weight: 100 kg

DRUGS (3)
  1. VIOXX [Suspect]
     Indication: BACK INJURY
     Route: 048
     Dates: start: 19990601, end: 20040930
  2. TEQUIN [Concomitant]
     Route: 065
  3. ALLEGRA [Concomitant]
     Route: 065

REACTIONS (10)
  - AORTIC ANEURYSM [None]
  - BLOOD CHOLESTEROL INCREASED [None]
  - CARDIAC DISORDER [None]
  - CARDIAC FAILURE CONGESTIVE [None]
  - CAROTID ARTERY STENOSIS [None]
  - CEREBROVASCULAR ACCIDENT [None]
  - CHEST PAIN [None]
  - DIABETES MELLITUS [None]
  - HYPERTENSION [None]
  - MYOCARDIAL INFARCTION [None]
